FAERS Safety Report 19377093 (Version 1)
Quarter: 2021Q2

REPORT INFORMATION
  Report Type: Spontaneous
  Country: US (occurrence: US)
  Receive Date: 20210604
  Receipt Date: 20210604
  Transmission Date: 20210717
  Serious: Yes (Life-Threatening, Hospitalization, Other)
  Sender: FDA-Public Use
  Company Number: US-BRACCO-2021US02251

PATIENT
  Age: 50 Year
  Sex: Female

DRUGS (3)
  1. LUMASON [Suspect]
     Active Substance: SULFUR HEXAFLUORIDE
     Indication: ECHOCARDIOGRAM
     Dosage: 2 ML, SINGLE
     Route: 042
     Dates: start: 20210528, end: 20210528
  2. LUMASON [Suspect]
     Active Substance: SULFUR HEXAFLUORIDE
     Indication: ECHOCARDIOGRAM
     Dosage: 2 ML, SINGLE
     Route: 042
     Dates: start: 20210528, end: 20210528
  3. LUMASON [Suspect]
     Active Substance: SULFUR HEXAFLUORIDE
     Indication: ECHOCARDIOGRAM
     Dosage: 2 ML, SINGLE
     Route: 042
     Dates: start: 20210528, end: 20210528

REACTIONS (5)
  - Cardiac arrest [Unknown]
  - Pulseless electrical activity [Unknown]
  - Pharyngeal swelling [Unknown]
  - Feeling abnormal [Unknown]
  - Loss of consciousness [Unknown]

NARRATIVE: CASE EVENT DATE: 20210528
